FAERS Safety Report 6449356-9 (Version None)
Quarter: 2009Q4

REPORT INFORMATION
  Report Type: 
  Country: None (occurrence: None)
  Receive Date: 20091120
  Receipt Date: 20091109
  Transmission Date: 20100525
  Serious: Yes (Other)
  Sender: FDA-Public Use
  Company Number: US-TYCO HEALTHCARE/MALLINCKRODT-T200901977

PATIENT
  Sex: Female
  Weight: 72.562 kg

DRUGS (2)
  1. HYDROMORPHONE HCL [Suspect]
     Indication: PROCEDURAL PAIN
     Dosage: Q4H
     Route: 048
     Dates: start: 20090617, end: 20090817
  2. NEXIUM [Concomitant]
     Indication: GASTROOESOPHAGEAL REFLUX DISEASE
     Dosage: ^YEARS^
     Route: 048

REACTIONS (20)
  - ABDOMINAL PAIN UPPER [None]
  - ANXIETY [None]
  - ASTHENIA [None]
  - DECREASED APPETITE [None]
  - DEPRESSION [None]
  - DIARRHOEA [None]
  - DYSPNOEA [None]
  - DYSURIA [None]
  - ERUCTATION [None]
  - FEELING ABNORMAL [None]
  - HEART RATE INCREASED [None]
  - HYPERTENSION [None]
  - INFLUENZA [None]
  - INSOMNIA [None]
  - OROPHARYNGEAL PAIN [None]
  - PHARYNGITIS [None]
  - THINKING ABNORMAL [None]
  - TOOTHACHE [None]
  - URINARY TRACT INFECTION [None]
  - WEIGHT DECREASED [None]
